FAERS Safety Report 7205085-5 (Version None)
Quarter: 2010Q4

REPORT INFORMATION
  Report Type: 
  Country: None (occurrence: None)
  Receive Date: 20101230
  Receipt Date: 20101227
  Transmission Date: 20110411
  Serious: Yes (Hospitalization)
  Sender: FDA-Public Use
  Company Number: IT-MERCK-1012ITA00178

PATIENT
  Age: 39 Year
  Sex: Male

DRUGS (4)
  1. FOSAMAX [Suspect]
     Indication: OSTEOPOROSIS
     Route: 048
     Dates: start: 20080224, end: 20101124
  2. DEFERASIROX [Suspect]
     Indication: THALASSAEMIA BETA
     Route: 048
     Dates: start: 20080223, end: 20101124
  3. TESTOSTERONE PROPIONATE [Concomitant]
     Route: 065
  4. CHOLECALCIFEROL [Concomitant]
     Route: 065
     Dates: start: 20100224

REACTIONS (2)
  - PERFORATED ULCER [None]
  - PERITONITIS [None]
